FAERS Safety Report 8174997-0 (Version None)
Quarter: 2012Q1

REPORT INFORMATION
  Report Type: 
  Country: None (occurrence: None)
  Receive Date: 20120229
  Receipt Date: 20120220
  Transmission Date: 20120608
  Serious: Yes (Hospitalization)
  Sender: FDA-Public Use
  Company Number: PHHO2011CN021311

PATIENT
  Sex: Female
  Weight: 63 kg

DRUGS (7)
  1. LBH589 [Suspect]
     Indication: MULTIPLE MYELOMA
     Dosage: UNK
     Route: 048
     Dates: start: 20111117, end: 20111219
  2. VELCADE [Suspect]
     Indication: MULTIPLE MYELOMA
     Dosage: 2.2 MG, UNK
     Route: 042
     Dates: start: 20111117, end: 20111218
  3. POTASSIUM CHLORIDE [Concomitant]
     Dosage: 0.5 G, TID
     Route: 048
     Dates: start: 20111226, end: 20120109
  4. POTASSIUM CHLORIDE [Concomitant]
     Dosage: 1 G, BID
     Route: 048
     Dates: start: 20120202, end: 20120211
  5. DEXAMETHASONE [Suspect]
     Indication: MULTIPLE MYELOMA
     Dosage: 20 MG, QD
     Route: 048
     Dates: start: 20111117, end: 20111215
  6. FAMOTIDINE [Concomitant]
     Indication: GASTRIC PH DECREASED
     Dosage: 20 MG, BID
     Route: 048
     Dates: start: 20120106, end: 20120111
  7. VORICONAZOLE [Suspect]

REACTIONS (3)
  - PNEUMONIA [None]
  - NEUROPATHY PERIPHERAL [None]
  - DIARRHOEA [None]
